FAERS Safety Report 6465818-2 (Version None)
Quarter: 2009Q4

REPORT INFORMATION
  Report Type: 
  Country: None (occurrence: None)
  Receive Date: 20091124
  Receipt Date: 20091113
  Transmission Date: 20100525
  Serious: Yes (Other)
  Sender: FDA-Public Use
  Company Number: 2009EU000283

PATIENT
  Age: 4 Year
  Sex: Female
  Weight: 20.5 kg

DRUGS (1)
  1. PROGRAF [Suspect]
     Indication: AUTOIMMUNE HEPATITIS
     Dosage: /D, ORAL
     Route: 048
     Dates: start: 20071201, end: 20080122

REACTIONS (1)
  - HYPERTRICHOSIS [None]
